FAERS Safety Report 9300773 (Version 1)
Quarter: 2013Q2

REPORT INFORMATION
  Report Type: Spontaneous
  Country: US (occurrence: None)
  Receive Date: 20130520
  Receipt Date: 20130520
  Transmission Date: 20140414
  Serious: Yes (Life-Threatening, Hospitalization, Other)
  Sender: FDA-Public Use
  Company Number: None

PATIENT
  Age: 48 Year
  Sex: Female
  Weight: 56.7 kg

DRUGS (1)
  1. ALPRAZOLAM [Suspect]
     Indication: ANXIETY
     Route: 048

REACTIONS (8)
  - Suicide attempt [None]
  - Irritability [None]
  - Anxiety [None]
  - Depression [None]
  - Hostility [None]
  - Musculoskeletal stiffness [None]
  - Insomnia [None]
  - Withdrawal syndrome [None]
